FAERS Safety Report 5812626-9 (Version None)
Quarter: 2008Q3

REPORT INFORMATION
  Report Type: 
  Country: None (occurrence: None)
  Receive Date: 20080717
  Receipt Date: 20080716
  Transmission Date: 20090109
  Serious: Yes (Hospitalization, Other)
  Sender: FDA-Public Use
  Company Number: US-ASTRAZENECA-2008UW14211

PATIENT
  Age: 21657 Day
  Sex: Male
  Weight: 76 kg

DRUGS (8)
  1. METOPROLOL TARTRATE [Suspect]
     Route: 048
     Dates: start: 20000101
  2. SUNITINIB MALATE [Suspect]
     Indication: METASTATIC RENAL CELL CARCINOMA
     Route: 048
     Dates: start: 20051213
  3. FLUVASTATIN [Concomitant]
     Dates: start: 20000101
  4. ACETYLSALICYLIC ACID SRT [Concomitant]
     Dates: start: 20000101
  5. FOSAMAX [Concomitant]
  6. ALENDRONIC ACID [Concomitant]
     Dates: start: 20050101
  7. METAMIZOL [Concomitant]
     Dates: start: 20000101
  8. METOPROLOL TARTRATE [Concomitant]

REACTIONS (3)
  - FALL [None]
  - VERTIGO [None]
  - WOUND [None]
